FAERS Safety Report 9193747 (Version 2)
Quarter: 2013Q3

REPORT INFORMATION
  Report Type: Spontaneous
  Country: US (occurrence: US)
  Receive Date: 20130327
  Receipt Date: 20130920
  Transmission Date: 20140515
  Serious: No
  Sender: FDA-Public Use
  Company Number: US-B.I. PHARMACEUTICALS,INC./RIDGEFIELD-2013-BI-07678BP

PATIENT
  Age: 75 Year
  Sex: Female

DRUGS (9)
  1. SPIRIVA [Suspect]
     Indication: CHRONIC OBSTRUCTIVE PULMONARY DISEASE
     Dosage: 18 MCG
     Route: 055
     Dates: start: 2012
  2. SPIRIVA [Suspect]
     Indication: ASTHMA
     Route: 048
     Dates: start: 20130319, end: 20130319
  3. LUMIGAN [Concomitant]
     Indication: GLAUCOMA
  4. BETOPTIC [Concomitant]
     Indication: GLAUCOMA
  5. SINGULAIR [Concomitant]
     Route: 048
  6. PULMICORT [Concomitant]
     Route: 055
  7. DIFLUNISAL [Concomitant]
     Indication: ARTHRITIS
     Route: 048
  8. LEVOTHYROXINE [Concomitant]
     Indication: HYPOTHYROIDISM
     Route: 048
  9. NEXIUM [Concomitant]
     Indication: ULCER
     Route: 048

REACTIONS (6)
  - Blindness [Not Recovered/Not Resolved]
  - Incorrect route of drug administration [Recovered/Resolved]
  - Dry mouth [Not Recovered/Not Resolved]
  - Dry eye [Not Recovered/Not Resolved]
  - Cataract [Recovered/Resolved]
  - Off label use [Not Recovered/Not Resolved]
